FAERS Safety Report 5372438-X (Version None)
Quarter: 2007Q2

REPORT INFORMATION
  Report Type: 
  Country: None (occurrence: None)
  Receive Date: 20070627
  Receipt Date: 20070614
  Transmission Date: 20071010
  Serious: Yes (Other)
  Sender: FDA-Public Use
  Company Number: IT-ELI_LILLY_AND_COMPANY-IT200706005604

PATIENT
  Age: 50 Year
  Sex: Male

DRUGS (4)
  1. CYMBALTA [Suspect]
     Indication: DEPRESSION
     Dosage: 30 MG, DAILY (1/D)
     Route: 048
     Dates: start: 20070101, end: 20070101
  2. CYMBALTA [Suspect]
     Dosage: 60 MG, DAILY (1/D)
     Route: 048
     Dates: start: 20070101, end: 20070101
  3. CYMBALTA [Suspect]
     Dosage: 45 MG, DAILY (1/D)
     Route: 048
     Dates: start: 20070101, end: 20070101
  4. CYMBALTA [Suspect]
     Dosage: 15 MG, DAILY (1/D)
     Route: 048
     Dates: start: 20070601, end: 20070601

REACTIONS (6)
  - BLOOD PRESSURE INCREASED [None]
  - DYSURIA [None]
  - ISCHAEMIA [None]
  - PARAESTHESIA [None]
  - PHOTOPSIA [None]
  - VISION BLURRED [None]
